FAERS Safety Report 5218711-7 (Version None)
Quarter: 2007Q1

REPORT INFORMATION
  Report Type: 
  Country: None (occurrence: None)
  Receive Date: 20070122
  Receipt Date: 20070108
  Transmission Date: 20070707
  Serious: Yes (Hospitalization)
  Sender: FDA-Public Use
  Company Number: 234728

PATIENT
  Age: 59 Year
  Sex: Male

DRUGS (11)
  1. AVASTIN [Suspect]
     Indication: NON-SMALL CELL LUNG CANCER
     Dosage: 1250 MG, UNK, INTRAVENOUS
     Route: 042
     Dates: start: 20060912
  2. DOCETAXEL(DOCETAXEL) [Suspect]
     Indication: NON-SMALL CELL LUNG CANCER
     Dosage: SEE IMAGE
     Route: 042
     Dates: start: 20060926
  3. CISPLATIN [Suspect]
     Indication: NON-SMALL CELL LUNG CANCER
     Dosage: SEE IMAGE
     Route: 042
     Dates: start: 20060926
  4. DEXAMETHASONE TAB [Concomitant]
  5. APREPITANT (APREPITANT) [Concomitant]
  6. ASPIRIN [Concomitant]
  7. ATORVASTATIN (ATORVASTATIN CALCIUM) [Concomitant]
  8. EZETIMIBE (EZETIMIBE) [Concomitant]
  9. FOLIC ACID [Concomitant]
  10. MULTI-VITAMIN SUPPLEMENT (MULTIVITAMINS NOS) [Concomitant]
  11. TOCOPHEROL (VITAMIN E) [Concomitant]

REACTIONS (5)
  - ABDOMINAL PAIN [None]
  - ABSCESS INTESTINAL [None]
  - COLITIS [None]
  - FATIGUE [None]
  - STOMATITIS [None]
